FAERS Safety Report 10968633 (Version 3)
Quarter: 2015Q2

REPORT INFORMATION
  Report Type: Spontaneous
  Country: JP (occurrence: JP)
  Receive Date: 20150330
  Receipt Date: 20150501
  Transmission Date: 20150821
  Serious: Yes (Other)
  Sender: FDA-Public Use
  Company Number: JP-KERYX BIOPHARMACEUTICALS, INC.-2014JP000616

PATIENT

DRUGS (8)
  1. ANPLAG [Concomitant]
     Active Substance: SARPOGRELATE
     Indication: ARTERIOSCLEROSIS
     Dosage: 1 DF, QD
     Route: 048
  2. ONEALFA [Concomitant]
     Active Substance: ALFACALCIDOL
     Indication: VITAMIN D DEFICIENCY
     Dosage: 0.25 ?G, QD
     Route: 048
  3. BAYASPIRIN [Concomitant]
     Active Substance: ASPIRIN
     Indication: ARTERIOSCLEROSIS
     Dosage: UNK
     Route: 048
  4. EPADEL                             /01682401/ [Concomitant]
     Active Substance: ETHYL ICOSAPENTATE\ICOSAPENT
     Indication: ARTERIOSCLEROSIS
     Dosage: UNK
     Route: 048
  5. RIONA [Suspect]
     Active Substance: FERRIC CITRATE ANHYDROUS
     Indication: HYPERPHOSPHATAEMIA
     Dosage: 250 MG, TID
     Route: 048
     Dates: start: 20140916, end: 20140917
  6. REGPARA [Concomitant]
     Active Substance: CINACALCET HYDROCHLORIDE
     Indication: HYPERPARATHYROIDISM SECONDARY
     Dosage: 25 MG, QD
     Route: 048
  7. WARFARIN                           /00014803/ [Concomitant]
     Active Substance: WARFARIN
     Indication: AORTIC VALVE REPLACEMENT
     Dosage: 2 MG, QD
     Route: 048
  8. SENNOSIDE                          /00571901/ [Concomitant]
     Active Substance: SENNOSIDES A AND B
     Indication: CONSTIPATION
     Dosage: 12 MG, QD
     Route: 048

REACTIONS (2)
  - Visual impairment [Recovered/Resolved]
  - Colour blindness acquired [None]

NARRATIVE: CASE EVENT DATE: 20140917
